FAERS Safety Report 8922033 (Version 1)
Quarter: 2012Q4

REPORT INFORMATION
  Report Type: 
  Country: BR (occurrence: BR)
  Receive Date: 20121123
  Receipt Date: 20121123
  Transmission Date: 20130627
  Serious: Yes (Life-Threatening, Hospitalization, Disabling, Other)
  Sender: FDA-Public Use
  Company Number: PHHY2012BR105371

PATIENT
  Sex: Female

DRUGS (2)
  1. FORASEQ [Suspect]
     Indication: ASTHMA
     Dosage: 1 DF, Q12H
     Route: 048
     Dates: start: 2011
  2. DIAZEPAM [Concomitant]
     Indication: SEDATION
     Dosage: 2 DF, QD
     Route: 048

REACTIONS (5)
  - Coma [Recovering/Resolving]
  - Cerebrovascular accident [Recovering/Resolving]
  - Cerebral disorder [Unknown]
  - Visual impairment [Recovering/Resolving]
  - Convulsion [Recovering/Resolving]
